FAERS Safety Report 8912002 (Version 2)
Quarter: 2013Q1

REPORT INFORMATION
  Report Type: Spontaneous
  Country: US (occurrence: US)
  Receive Date: 20121116
  Receipt Date: 20130122
  Transmission Date: 20140127
  Serious: No
  Sender: FDA-Public Use
  Company Number: US-PFIZER INC-2012286823

PATIENT
  Age: 63 Year
  Sex: Male
  Weight: 125 kg

DRUGS (5)
  1. LYRICA [Suspect]
     Indication: PARAESTHESIA
     Dosage: 150 MG, DAILY
     Dates: start: 2012
  2. LYRICA [Suspect]
     Indication: BURNING SENSATION
  3. NEURONTIN [Suspect]
     Indication: PARAESTHESIA
     Dosage: 600 MG, 2X/DAY
     Dates: end: 2012
  4. NEURONTIN [Suspect]
     Indication: BURNING SENSATION
  5. PLAVIX [Concomitant]
     Indication: ANTICOAGULANT THERAPY
     Dosage: UNK

REACTIONS (3)
  - Dry mouth [Recovering/Resolving]
  - Disorientation [Recovering/Resolving]
  - Dizziness [Recovering/Resolving]
